FAERS Safety Report 7198634-7 (Version None)
Quarter: 2010Q4

REPORT INFORMATION
  Report Type: 
  Country: None (occurrence: None)
  Receive Date: 20101227
  Receipt Date: 20091130
  Transmission Date: 20110411
  Serious: No
  Sender: FDA-Public Use
  Company Number: US-ABBOTT-09P-163-0611835-00

PATIENT
  Sex: Male
  Weight: 74.91 kg

DRUGS (3)
  1. LUPRON DEPOT [Suspect]
     Indication: PROSTATE CANCER
     Route: 030
     Dates: start: 20090701
  2. CALCIUM WITH VITAMIN D [Concomitant]
     Indication: MINERAL SUPPLEMENTATION
  3. SALICYLATE [Concomitant]
     Indication: INFLAMMATION

REACTIONS (3)
  - ALOPECIA [None]
  - INSOMNIA [None]
  - NOCTURIA [None]
